FAERS Safety Report 20597295 (Version 8)
Quarter: 2023Q2

REPORT INFORMATION
  Report Type: Spontaneous
  Country: US (occurrence: US)
  Receive Date: 20220315
  Receipt Date: 20230410
  Transmission Date: 20230721
  Serious: Yes (Other)
  Sender: FDA-Public Use
  Company Number: US-PFIZER INC-202200365527

PATIENT
  Age: 72 Year
  Sex: Female

DRUGS (3)
  1. RETACRIT [Suspect]
     Active Substance: EPOETIN ALFA-EPBX
     Indication: Nephrogenic anaemia
     Dosage: UNK, WEEKLY
  2. RETACRIT [Suspect]
     Active Substance: EPOETIN ALFA-EPBX
     Dosage: 10000 IU/ML (VL 10X1ML)
  3. RETACRIT [Suspect]
     Active Substance: EPOETIN ALFA-EPBX
     Dosage: 10000 IU, WEEKLY
     Route: 058

REACTIONS (3)
  - Multiple sclerosis [Unknown]
  - Off label use [Unknown]
  - Loss of personal independence in daily activities [Unknown]
